FAERS Safety Report 4357960-7 (Version None)
Quarter: 2004Q2

REPORT INFORMATION
  Report Type: 
  Country: None (occurrence: None)
  Receive Date: 20040510
  Receipt Date: 20040426
  Transmission Date: 20050107
  Serious: No
  Sender: FDA-Public Use
  Company Number: 2004-115207-NL

PATIENT
  Age: 31 Year
  Sex: Female

DRUGS (3)
  1. MENOTROPINS [Suspect]
     Indication: OVULATION INDUCTION
  2. MEDROXYPROGESTERONE ACETATE [Concomitant]
  3. CLOMIPHENE CITRATE [Concomitant]

REACTIONS (6)
  - DRUG EFFECT DECREASED [None]
  - ENDOMETRIAL CANCER [None]
  - ENDOMETRIAL HYPERPLASIA [None]
  - OVARIAN ADENOMA [None]
  - OVARIAN CYST [None]
  - PELVIC PERITONEAL ADHESIONS [None]
